FAERS Safety Report 17434875 (Version 4)
Quarter: 2020Q1

REPORT INFORMATION
  Report Type: Spontaneous
  Country: US (occurrence: US)
  Receive Date: 20200219
  Receipt Date: 20200312
  Transmission Date: 20200409
  Serious: Yes (Other)
  Sender: FDA-Public Use
  Company Number: US-PFIZER INC-2020072850

PATIENT
  Age: 85 Year
  Sex: Female
  Weight: 64.85 kg

DRUGS (1)
  1. FLECTOR [Suspect]
     Active Substance: DICLOFENAC EPOLAMINE
     Indication: ROTATOR CUFF SYNDROME
     Dosage: TWO PATCHES A DAY (12 HOURS APART)
     Route: 062
     Dates: start: 20180102

REACTIONS (8)
  - Malaise [Recovered/Resolved]
  - Nasopharyngitis [Not Recovered/Not Resolved]
  - Product dispensing error [Unknown]
  - Loss of personal independence in daily activities [Unknown]
  - Sinusitis [Unknown]
  - Kidney infection [Recovered/Resolved]
  - Muscle spasms [Not Recovered/Not Resolved]
  - Renal disorder [Recovered/Resolved]

NARRATIVE: CASE EVENT DATE: 20200306
